FAERS Safety Report 25051801 (Version 1)
Quarter: 2025Q1

REPORT INFORMATION
  Report Type: Report from Study
  Country: US (occurrence: US)
  Receive Date: 20250307
  Receipt Date: 20250307
  Transmission Date: 20250409
  Serious: Yes (Hospitalization)
  Sender: ABBVIE
  Company Number: US-ABBVIE-6156781

PATIENT
  Age: 58 Year
  Sex: Male
  Weight: 75.296 kg

DRUGS (1)
  1. SKYRIZI [Suspect]
     Active Substance: RISANKIZUMAB-RZAA
     Indication: Psoriasis
     Route: 058
     Dates: start: 2016

REACTIONS (11)
  - Movement disorder [Recovering/Resolving]
  - Calcinosis [Not Recovered/Not Resolved]
  - Feeding disorder [Recovering/Resolving]
  - Pain [Recovering/Resolving]
  - Swelling [Not Recovered/Not Resolved]
  - Weight decreased [Not Recovered/Not Resolved]
  - General physical health deterioration [Recovering/Resolving]
  - Psoriasis [Not Recovered/Not Resolved]
  - Asthenia [Not Recovered/Not Resolved]
  - Inflammation [Recovering/Resolving]
  - Skin disorder [Recovering/Resolving]

NARRATIVE: CASE EVENT DATE: 20231201
